FAERS Safety Report 25184665 (Version 1)
Quarter: 2025Q2

REPORT INFORMATION
  Report Type: Spontaneous
  Country: US (occurrence: US)
  Receive Date: 20250410
  Receipt Date: 20250410
  Transmission Date: 20250716
  Serious: No
  Sender: BAYER
  Company Number: US-BAYER-2025A048529

PATIENT
  Age: 25 Year
  Sex: Female

DRUGS (3)
  1. CLARITIN [Suspect]
     Active Substance: LORATADINE
     Indication: Hypersensitivity
  2. CLARITIN [Suspect]
     Active Substance: LORATADINE
     Indication: Nasal congestion
  3. CLARITIN [Suspect]
     Active Substance: LORATADINE
     Indication: Sneezing

REACTIONS (2)
  - Headache [Recovering/Resolving]
  - Drug effect less than expected [None]
